FAERS Safety Report 9413299 (Version 1)
Quarter: 2013Q2

REPORT INFORMATION
  Report Type: Spontaneous
  Country: US (occurrence: None)
  Receive Date: 20130509
  Receipt Date: 20130509
  Transmission Date: 20140414
  Serious: Yes (Other)
  Sender: FDA-Public Use
  Company Number: GAM-038-13-US

PATIENT
  Sex: Female

DRUGS (1)
  1. OCTAGAM 5 (HUMAN NORMAL IMMUNOGLOBULIN FOR INTRAVENOUS ADMINISTRATION) [Suspect]
     Dates: start: 201207

REACTIONS (2)
  - Hepatitis A virus test positive [None]
  - Infection [None]
